FAERS Safety Report 24053465 (Version 2)
Quarter: 2024Q3

REPORT INFORMATION
  Report Type: Spontaneous
  Country: JP (occurrence: JP)
  Receive Date: 20240705
  Receipt Date: 20240915
  Transmission Date: 20241016
  Serious: No
  Sender: ALEXION PHARMACEUTICALS
  Company Number: JP-AstraZeneca-CH-00657169A

PATIENT
  Age: 57 Year
  Sex: Male

DRUGS (1)
  1. ULTOMIRIS [Suspect]
     Active Substance: RAVULIZUMAB-CWVZ
     Indication: Myasthenia gravis
     Dosage: UNK
     Route: 042

REACTIONS (2)
  - Eyelid ptosis [Recovered/Resolved]
  - Muscular weakness [Recovered/Resolved]
